FAERS Safety Report 26117471 (Version 1)
Quarter: 2025Q4

REPORT INFORMATION
  Report Type: Spontaneous
  Country: US (occurrence: None)
  Receive Date: 20251203
  Receipt Date: 20251203
  Transmission Date: 20260118
  Serious: Yes (Other)
  Sender: FDA-CTU
  Company Number: None

PATIENT
  Sex: Female

DRUGS (7)
  1. LENALIDOMIDE [Suspect]
     Active Substance: LENALIDOMIDE
     Indication: Plasma cell myeloma
     Dosage: TAKE 1 CAPSULE BY MOUTH DAILY. BEGIN TAKING ON DECEMBER 30, 2025. TAKE FOR 21 DAYS FOLLOWED  BY 7 DAYS OFF.
     Route: 048
  2. ASCORBIC AGO [Concomitant]
  3. CALCIUM PLUS [Concomitant]
  4. COENZYME Q10 [Concomitant]
     Active Substance: DIETARY SUPPLEMENT\UBIDECARENONE
  5. DARZALEX  SOL [Concomitant]
  6. LATANOPROST SOL [Concomitant]
  7. MULTI-VITI [Concomitant]

REACTIONS (2)
  - Decreased appetite [None]
  - Therapy interrupted [None]
